FAERS Safety Report 12397733 (Version 1)
Quarter: 2016Q2

REPORT INFORMATION
  Report Type: Spontaneous
  Country: ES (occurrence: ES)
  Receive Date: 20160524
  Receipt Date: 20160524
  Transmission Date: 20160815
  Serious: Yes (Other)
  Sender: FDA-Public Use
  Company Number: ES-SUN PHARMACEUTICAL INDUSTRIES LTD-2016R1-117104

PATIENT
  Age: 62 Year
  Sex: Male

DRUGS (4)
  1. FLUOROURACIL. [Suspect]
     Active Substance: FLUOROURACIL
     Indication: COLON CANCER
     Dosage: UNK
     Route: 065
  2. CALCIUM FOLINAT [Suspect]
     Active Substance: LEUCOVORIN CALCIUM
     Indication: COLON CANCER
     Dosage: UNK
     Route: 065
  3. IRINOTECAN [Suspect]
     Active Substance: IRINOTECAN
     Indication: COLON CANCER
     Dosage: UNK
     Route: 065
  4. BEVACIZUMAB [Suspect]
     Active Substance: BEVACIZUMAB
     Indication: COLON CANCER
     Dosage: UNK
     Route: 065

REACTIONS (2)
  - Disease progression [Unknown]
  - Treatment failure [Unknown]
